FAERS Safety Report 5064212-9 (Version None)
Quarter: 2006Q3

REPORT INFORMATION
  Report Type: 
  Country: None (occurrence: None)
  Receive Date: 20060728
  Receipt Date: 20060120
  Transmission Date: 20061208
  Serious: No
  Sender: FDA-Public Use
  Company Number: S2006US00706

PATIENT
  Age: 17 Year
  Sex: Male

DRUGS (1)
  1. ZANTAC [Suspect]
     Indication: DRUG USE FOR UNKNOWN INDICATION

REACTIONS (2)
  - ABDOMINAL DISTENSION [None]
  - PAIN [None]
